FAERS Safety Report 9169166 (Version 1)
Quarter: 2013Q1

REPORT INFORMATION
  Report Type: Spontaneous
  Country: US (occurrence: US)
  Receive Date: 20130315
  Receipt Date: 20130315
  Transmission Date: 20140127
  Serious: Yes (Disabling)
  Sender: FDA-Public Use
  Company Number: US-009507513-1303USA006735

PATIENT
  Age: 27 Year
  Sex: Male

DRUGS (4)
  1. SAPHRIS [Suspect]
     Indication: SUICIDAL IDEATION
     Dosage: 10 MG, UNK
     Route: 048
     Dates: start: 20130218
  2. SAPHRIS [Suspect]
     Indication: BIPOLAR I DISORDER
  3. SAPHRIS [Suspect]
     Indication: BIPOLAR II DISORDER
  4. LITHIUM [Concomitant]
     Dosage: 600 MG, UNK

REACTIONS (2)
  - Somnolence [Unknown]
  - Hypersomnia [Unknown]
